FAERS Safety Report 24655456 (Version 1)
Quarter: 2024Q4

REPORT INFORMATION
  Report Type: Spontaneous
  Country: RS (occurrence: RS)
  Receive Date: 20241123
  Receipt Date: 20241123
  Transmission Date: 20250115
  Serious: Yes (Other)
  Sender: MERCK
  Company Number: RS-009507513-2411SRB008408

PATIENT
  Sex: Male

DRUGS (3)
  1. RALTEGRAVIR POTASSIUM [Suspect]
     Active Substance: RALTEGRAVIR POTASSIUM
     Indication: HIV infection
     Dosage: 600 MILLIGRAM, BID
     Dates: end: 20240528
  2. TENOFOVIR DISOPROXIL [Concomitant]
     Active Substance: TENOFOVIR DISOPROXIL
     Indication: HIV infection
     Dosage: 245 MILLIGRAM, QD
     Dates: end: 20240528
  3. EMTRICITABINE\TENOFOVIR [Concomitant]
     Active Substance: EMTRICITABINE\TENOFOVIR
     Indication: HIV infection
     Dosage: 1 PER DAY
     Dates: end: 20240528

REACTIONS (7)
  - Pyrexia [Unknown]
  - Pharyngitis [Unknown]
  - Perineal erythema [Unknown]
  - Insomnia [Recovered/Resolved]
  - Nightmare [Recovered/Resolved]
  - Hallucination [Recovered/Resolved]
  - Therapy change [Unknown]

NARRATIVE: CASE EVENT DATE: 20231201
